FAERS Safety Report 12202373 (Version 2)
Quarter: 2016Q2

REPORT INFORMATION
  Report Type: Report from Study
  Country: US (occurrence: US)
  Receive Date: 20160322
  Receipt Date: 20160519
  Transmission Date: 20160815
  Serious: Yes (Hospitalization)
  Sender: FDA-Public Use
  Company Number: US-BIOGEN-2016BI00206005

PATIENT
  Age: 37 Year
  Sex: Female
  Weight: 77.18 kg

DRUGS (21)
  1. TECFIDERA [Suspect]
     Active Substance: DIMETHYL FUMARATE
     Route: 048
     Dates: start: 20160219
  2. VITAMIN B COMPLEX [Concomitant]
     Active Substance: CYANOCOBALAMIN\DEXPANTHENOL\NIACINAMIDE\PYRIDOXINE HYDROCHLORIDE\RIBOFLAVIN 5^-PHOSPHATE SODIUM\THIAMINE HYDROCHLORIDE\VITAMIN B COMPLEX
     Indication: PRODUCT USED FOR UNKNOWN INDICATION
     Route: 048
  3. ZOLOFT [Concomitant]
     Active Substance: SERTRALINE HYDROCHLORIDE
     Indication: PRODUCT USED FOR UNKNOWN INDICATION
     Route: 048
  4. TECFIDERA [Suspect]
     Active Substance: DIMETHYL FUMARATE
     Route: 048
     Dates: start: 20160308
  5. CHOLECALCIFEROL [Concomitant]
     Active Substance: CHOLECALCIFEROL
     Indication: PRODUCT USED FOR UNKNOWN INDICATION
     Route: 048
  6. PRINIVIL [Concomitant]
     Active Substance: LISINOPRIL
     Indication: PRODUCT USED FOR UNKNOWN INDICATION
     Route: 048
     Dates: start: 20151029
  7. ULTRAM [Concomitant]
     Active Substance: TRAMADOL HYDROCHLORIDE
     Indication: PAIN
     Dosage: PRN ; OKAY TO COMBINE WITH TYLENOL MEDICATION
     Route: 048
  8. ERGOCALCIFEROL. [Concomitant]
     Active Substance: ERGOCALCIFEROL
     Indication: PRODUCT USED FOR UNKNOWN INDICATION
     Route: 048
  9. TECFIDERA [Suspect]
     Active Substance: DIMETHYL FUMARATE
     Indication: MULTIPLE SCLEROSIS
     Route: 048
     Dates: start: 20160209
  10. MOTRIN [Concomitant]
     Active Substance: IBUPROFEN
     Indication: HEADACHE
     Dosage: AS NEEDED
     Route: 048
  11. ZESTRIL [Concomitant]
     Active Substance: LISINOPRIL
     Indication: PRODUCT USED FOR UNKNOWN INDICATION
     Route: 048
     Dates: start: 20151029
  12. NEURONTIN [Concomitant]
     Active Substance: GABAPENTIN
     Indication: PRODUCT USED FOR UNKNOWN INDICATION
     Dosage: TAKE 1 TO 2 CAPSULES
     Route: 048
     Dates: start: 20151012
  13. PROTONIX [Concomitant]
     Active Substance: PANTOPRAZOLE SODIUM
     Indication: PRODUCT USED FOR UNKNOWN INDICATION
     Route: 048
     Dates: start: 20150804
  14. PROAIR VENTOLIN [Concomitant]
     Indication: WHEEZING
     Dosage: 2 PUFFS AS NEEDED
     Route: 065
     Dates: start: 20150723
  15. HYDRODIURIL [Concomitant]
     Active Substance: HYDROCHLOROTHIAZIDE
     Indication: PRODUCT USED FOR UNKNOWN INDICATION
     Route: 048
     Dates: start: 20151029
  16. LIORESAL [Concomitant]
     Active Substance: BACLOFEN
     Indication: PRODUCT USED FOR UNKNOWN INDICATION
     Dosage: 5-10MG TOTAL AS NEEDED
     Route: 048
     Dates: start: 20160209
  17. NEURONTIN [Concomitant]
     Active Substance: GABAPENTIN
     Dosage: NIGHTLY
     Route: 048
  18. MOBIC [Concomitant]
     Active Substance: MELOXICAM
     Indication: MYALGIA
     Dosage: AS NEEDED
     Route: 048
     Dates: start: 20160204
  19. TROKENDI [Concomitant]
     Active Substance: TOPIRAMATE
     Indication: PRODUCT USED FOR UNKNOWN INDICATION
     Route: 048
  20. TECFIDERA [Suspect]
     Active Substance: DIMETHYL FUMARATE
     Route: 048
     Dates: start: 20160222, end: 20160304
  21. PAMELOR [Concomitant]
     Active Substance: NORTRIPTYLINE HYDROCHLORIDE
     Indication: PRODUCT USED FOR UNKNOWN INDICATION
     Dosage: NIGHTLY
     Route: 048
     Dates: start: 20151109

REACTIONS (10)
  - Photophobia [Unknown]
  - Generalised anxiety disorder [Unknown]
  - Nausea [Recovered/Resolved]
  - Headache [Not Recovered/Not Resolved]
  - Dizziness [Unknown]
  - Systemic inflammatory response syndrome [Not Recovered/Not Resolved]
  - White blood cell count decreased [Recovered/Resolved]
  - Hypotension [Recovered/Resolved]
  - Abdominal pain upper [Recovered/Resolved]
  - Vomiting [Recovered/Resolved]

NARRATIVE: CASE EVENT DATE: 20160303
